FAERS Safety Report 17111260 (Version 4)
Quarter: 2020Q1

REPORT INFORMATION
  Report Type: Spontaneous
  Country: DE (occurrence: DE)
  Receive Date: 20191204
  Receipt Date: 20200310
  Transmission Date: 20200409
  Serious: Yes (Hospitalization, Other)
  Sender: FDA-Public Use
  Company Number: DE-009507513-1911DEU012664

PATIENT
  Age: 68 Year
  Sex: Male
  Weight: 77 kg

DRUGS (1)
  1. KEYTRUDA [Suspect]
     Active Substance: PEMBROLIZUMAB
     Indication: MALIGNANT MELANOMA STAGE III
     Dosage: 200 MILLIGRAM, EVERY 3 WEEKS, CYCLE
     Route: 042
     Dates: start: 20190227, end: 20191106

REACTIONS (14)
  - Type 2 diabetes mellitus [Recovered/Resolved with Sequelae]
  - Weight decreased [Recovered/Resolved]
  - Pancreatic failure [Unknown]
  - Arteriosclerosis [Unknown]
  - Blood corticotrophin decreased [Unknown]
  - Occult blood negative [Unknown]
  - Hypophysitis [Unknown]
  - Nodule [Unknown]
  - Haemoglobin increased [Unknown]
  - Lymphadenopathy [Unknown]
  - Steatorrhoea [Unknown]
  - Benign prostatic hyperplasia [Unknown]
  - Autoimmune pancreatitis [Recovered/Resolved with Sequelae]
  - Cholecystectomy [Unknown]

NARRATIVE: CASE EVENT DATE: 201911
